FAERS Safety Report 24772793 (Version 2)
Quarter: 2025Q3

REPORT INFORMATION
  Report Type: Spontaneous
  Country: US (occurrence: US)
  Receive Date: 20241225
  Receipt Date: 20250816
  Transmission Date: 20251020
  Serious: No
  Sender: ALEXION PHARMACEUTICALS
  Company Number: US-AstraZeneca-CH-00771909A

PATIENT
  Sex: Female

DRUGS (2)
  1. BREZTRI [Suspect]
     Active Substance: BUDESONIDE\FORMOTEROL\GLYCOPYRROLATE
  2. NYSTATIN [Concomitant]
     Active Substance: NYSTATIN

REACTIONS (4)
  - Product prescribing issue [Unknown]
  - Device use issue [Unknown]
  - Candida infection [Unknown]
  - Device delivery system issue [Unknown]
